FAERS Safety Report 23469478 (Version 2)
Quarter: 2024Q1

REPORT INFORMATION
  Report Type: Spontaneous
  Country: GB (occurrence: GB)
  Receive Date: 20240202
  Receipt Date: 20240226
  Transmission Date: 20240409
  Serious: Yes (Other)
  Sender: FDA-Public Use
  Company Number: GB-AMGEN-GBRSP2024017757

PATIENT
  Sex: Female
  Weight: 40 kg

DRUGS (3)
  1. KYPROLIS [Suspect]
     Active Substance: CARFILZOMIB
     Indication: Product used for unknown indication
     Dosage: 56 MILLIGRAM/SQ. METER AS PER BODY SURFACE AREA AND TOTAL DOSE IN MG (72 MG)
     Route: 065
  2. KYPROLIS [Suspect]
     Active Substance: CARFILZOMIB
     Dosage: 45 MILLIGRAM/SQ. METER S PER BODY SURFACE AREA AND TOTAL DOSE IN MG (72 MG)
     Route: 065
  3. DARATUMUMAB [Concomitant]
     Active Substance: DARATUMUMAB
     Indication: Product used for unknown indication
     Dosage: UNK

REACTIONS (1)
  - Stress cardiomyopathy [Recovered/Resolved]
